FAERS Safety Report 13665962 (Version 1)
Quarter: 2017Q2

REPORT INFORMATION
  Report Type: Report from Study
  Country: JP (occurrence: JP)
  Receive Date: 20170619
  Receipt Date: 20170619
  Transmission Date: 20170830
  Serious: Yes (Hospitalization)
  Sender: FDA-Public Use
  Company Number: JP-PFIZER INC-2017263467

PATIENT
  Age: 69 Year
  Sex: Female
  Weight: 56 kg

DRUGS (6)
  1. FULVESTRANT [Concomitant]
     Active Substance: FULVESTRANT
     Indication: BREAST CANCER
     Dosage: 500 MG, ONCE EVERY 4 WEEKS
     Route: 030
     Dates: start: 20130104
  2. CELECOX [Suspect]
     Active Substance: CELECOXIB
     Dosage: UNK UNK, UNKNOWN FREQ.
     Route: 065
     Dates: start: 20121004
  3. FULVESTRANT [Concomitant]
     Active Substance: FULVESTRANT
     Indication: BREAST CANCER
     Dosage: BKM120 OR PLACEBO
     Route: 048
     Dates: start: 20130104, end: 20130307
  4. DENOTAS [Concomitant]
     Active Substance: CALCIUM CARBONATE\CHOLECALCIFEROL\MAGNESIUM CARBONATE
     Dosage: UNK UNK, UNKNOWN FREQ.
     Route: 065
     Dates: start: 20150731
  5. LOXONIN [Concomitant]
     Active Substance: LOXOPROFEN SODIUM
     Dosage: UNK UNK, UNKNOWN FREQ.
     Route: 065
     Dates: start: 20150925
  6. RANMARK [Concomitant]
     Active Substance: DENOSUMAB
     Dosage: UNK UNK, UNKNOWN FREQ.
     Route: 065
     Dates: start: 20150731, end: 20170309

REACTIONS (1)
  - Toothache [Recovered/Resolved]

NARRATIVE: CASE EVENT DATE: 20170406
